FAERS Safety Report 19298365 (Version 1)
Quarter: 2021Q2

REPORT INFORMATION
  Report Type: Spontaneous
  Country: GB (occurrence: GB)
  Receive Date: 20210525
  Receipt Date: 20210525
  Transmission Date: 20210717
  Serious: Yes (Life-Threatening, Hospitalization, Other)
  Sender: FDA-Public Use
  Company Number: GB-AUROBINDO-AUR-APL-2021-021078

PATIENT
  Age: 28 Year
  Sex: Male
  Weight: 73 kg

DRUGS (2)
  1. BUPIVACAINE HYDROCHLORIDE. [Suspect]
     Active Substance: BUPIVACAINE HYDROCHLORIDE
     Indication: LOCAL ANAESTHESIA
     Dosage: 80 MILLIGRAM
     Route: 065
     Dates: start: 20210512, end: 20210512
  2. XYLOCAINE [Suspect]
     Active Substance: LIDOCAINE HYDROCHLORIDE
     Indication: LOCAL ANAESTHESIA
     Dosage: 240 MILLIGRAM LIDOCAINE
     Route: 065
     Dates: start: 20210512, end: 20210512

REACTIONS (1)
  - Local anaesthetic systemic toxicity [Recovered/Resolved]

NARRATIVE: CASE EVENT DATE: 20210512
